FAERS Safety Report 10358653 (Version 2)
Quarter: 2014Q3

REPORT INFORMATION
  Report Type: Spontaneous
  Country: FR (occurrence: FR)
  Receive Date: 20140803
  Receipt Date: 20140803
  Transmission Date: 20150326
  Serious: Yes (Other)
  Sender: FDA-Public Use
  Company Number: FR-ROCHE-1441577

PATIENT
  Age: 66 Year
  Sex: Male
  Weight: 92.7 kg

DRUGS (8)
  1. ROACTEMRA [Suspect]
     Active Substance: TOCILIZUMAB
     Indication: RHEUMATOID ARTHRITIS
     Dosage: 720 MG
     Route: 042
     Dates: start: 20140424
  2. ROACTEMRA [Suspect]
     Active Substance: TOCILIZUMAB
     Route: 042
     Dates: start: 20140717
  3. OROCAL D3 [Concomitant]
     Active Substance: CALCIUM CARBONATE\CHOLECALCIFEROL
     Indication: OSTEOPOROSIS PROPHYLAXIS
     Route: 065
     Dates: start: 2013
  4. OMEPRAZOLE. [Concomitant]
     Active Substance: OMEPRAZOLE
     Indication: ULCER
     Route: 048
     Dates: start: 201305
  5. CORTANCYL [Concomitant]
     Active Substance: PREDNISONE
     Indication: RHEUMATOID ARTHRITIS
     Route: 048
     Dates: start: 201203
  6. ROACTEMRA [Suspect]
     Active Substance: TOCILIZUMAB
     Dosage: 720 MG
     Route: 042
     Dates: start: 20140505
  7. ROACTEMRA [Suspect]
     Active Substance: TOCILIZUMAB
     Dosage: 720 MG
     Route: 042
     Dates: start: 20140606
  8. COZAAR [Concomitant]
     Active Substance: LOSARTAN POTASSIUM
     Indication: HYPERTENSION
     Route: 065
     Dates: start: 2009

REACTIONS (5)
  - Dyspnoea [Recovered/Resolved]
  - Conjunctivitis [Unknown]
  - Cough [Not Recovered/Not Resolved]
  - Headache [Recovered/Resolved]
  - Eyelid oedema [Recovered/Resolved]

NARRATIVE: CASE EVENT DATE: 20140424
